FAERS Safety Report 24119127 (Version 1)
Quarter: 2024Q3

REPORT INFORMATION
  Report Type: Spontaneous
  Country: US (occurrence: None)
  Receive Date: 20240718
  Receipt Date: 20240718
  Transmission Date: 20241016
  Serious: Yes (Hospitalization)
  Sender: Public
  Company Number: None

PATIENT
  Age: 73 Year
  Sex: Female

DRUGS (1)
  1. LETROZOLE [Suspect]
     Active Substance: LETROZOLE
     Dosage: FREQUENCY : DAILY;?
     Dates: start: 20240229

REACTIONS (3)
  - Liver function test abnormal [None]
  - Hepatic failure [None]
  - Stomatitis [None]
